FAERS Safety Report 26041994 (Version 2)
Quarter: 2025Q4

REPORT INFORMATION
  Report Type: Spontaneous
  Country: JP (occurrence: JP)
  Receive Date: 20251113
  Receipt Date: 20251124
  Transmission Date: 20260119
  Serious: Yes (Life-Threatening, Other)
  Sender: TEVA
  Company Number: JP-Pharmaand-2025001157

PATIENT
  Age: 78 Year
  Sex: Female

DRUGS (3)
  1. BENDAMUSTINE [Suspect]
     Active Substance: BENDAMUSTINE
     Indication: Follicular lymphoma
     Dosage: 6 CYCLES
     Route: 065
  2. OBINUTUZUMAB [Suspect]
     Active Substance: OBINUTUZUMAB
     Indication: Follicular lymphoma
     Dosage: 6 CYCLES
     Route: 065
  3. AVELUMAB [Suspect]
     Active Substance: AVELUMAB
     Indication: Neuroendocrine carcinoma of the skin
     Dosage: ON DAYS 0 AND 14
     Route: 065

REACTIONS (2)
  - Neuroendocrine carcinoma of the skin [Unknown]
  - Neutropenia [Unknown]
